FAERS Safety Report 4666487-4 (Version None)
Quarter: 2005Q2

REPORT INFORMATION
  Report Type: 
  Country: None (occurrence: None)
  Receive Date: 20050518
  Receipt Date: 20041116
  Transmission Date: 20051028
  Serious: Yes (Other)
  Sender: FDA-Public Use
  Company Number: 2004095292

PATIENT
  Sex: Female

DRUGS (2)
  1. PROVERA [Suspect]
     Indication: HORMONE REPLACEMENT THERAPY
     Dosage: UNKNOWN (UNK), ORAL
     Route: 048
     Dates: start: 20000101, end: 20020101
  2. PROVELLA-14 (ESTROGENS CONJUGATED, MEDROXYPROGESTERONE ACETATE) [Suspect]
     Indication: HORMONE REPLACEMENT THERAPY
     Dosage: UNKNOWN (UNK), ORAL
     Route: 048
     Dates: start: 20000101, end: 20020101

REACTIONS (1)
  - DEEP VEIN THROMBOSIS [None]
